FAERS Safety Report 4641139-5 (Version None)
Quarter: 2005Q2

REPORT INFORMATION
  Report Type: 
  Country: None (occurrence: None)
  Receive Date: 20050419
  Receipt Date: 20050419
  Transmission Date: 20051028
  Serious: Yes (Other)
  Sender: FDA-Public Use
  Company Number: None

PATIENT
  Sex: Female
  Weight: 63.9572 kg

DRUGS (4)
  1. LEVAQUIN [Suspect]
     Indication: BRONCHITIS
     Dosage: 750MG ONCE DAILY ORALLY
     Route: 048
     Dates: start: 20050321, end: 20050322
  2. HYDROCHLOROTHIAZIDE [Concomitant]
  3. TRICOR [Concomitant]
  4. POTASSIUM CHLORIDE [Concomitant]

REACTIONS (4)
  - ANXIETY [None]
  - INSOMNIA [None]
  - PANIC ATTACK [None]
  - RESTLESSNESS [None]
